FAERS Safety Report 24466871 (Version 1)
Quarter: 2024Q4

REPORT INFORMATION
  Report Type: Report from Study
  Country: US (occurrence: US)
  Receive Date: 20241018
  Receipt Date: 20241018
  Transmission Date: 20250114
  Serious: No
  Sender: ROCHE
  Company Number: US-ROCHE-3545672

PATIENT
  Age: 37 Year
  Sex: Male
  Weight: 85.28 kg

DRUGS (2)
  1. XOLAIR [Suspect]
     Active Substance: OMALIZUMAB
     Indication: Idiopathic urticaria
     Dosage: DATE OF SERVICE : 8/MAR/2024, 29/MAR/2024.?PRIOR TREATMENT DATES AS 26/AUG/2022, 23/SEP/202224, 28/O
     Route: 065
     Dates: start: 2020
  2. XOLAIR [Suspect]
     Active Substance: OMALIZUMAB

REACTIONS (2)
  - Off label use [Unknown]
  - No adverse event [Unknown]
